FAERS Safety Report 8615558 (Version 2)
Quarter: 2012Q4

REPORT INFORMATION
  Report Type: 
  Country: US (occurrence: US)
  Receive Date: 20120614
  Receipt Date: 20120927
  Transmission Date: 20130627
  Serious: No
  Sender: FDA-Public Use
  Company Number: US-AMGEN-USASP2012020763

PATIENT
  Sex: Female

DRUGS (12)
  1. PROLIA [Suspect]
     Indication: OSTEOPOROSIS
     Dosage: 60 mg, q6mo
     Route: 058
     Dates: start: 20120328, end: 20120328
  2. CALTRATE WITH VITAMIN D [Concomitant]
     Dosage: 2 mg, UNK
  3. CALTRATE WITH VITAMIN D [Concomitant]
  4. VITAMIN B12                        /00056201/ [Concomitant]
     Dosage: UNK
  5. POTASSIUM [Concomitant]
     Dosage: UNK
  6. MULTIVITAMIN                       /00097801/ [Concomitant]
     Dosage: UNK
  7. SYNTHROID [Concomitant]
     Dosage: UNK
  8. BISOPROLOL [Concomitant]
     Dosage: UNK
  9. HYZAAR [Concomitant]
     Dosage: UNK
  10. STATIN [Concomitant]
     Indication: BLOOD CHOLESTEROL
     Dosage: UNK
  11. DETROL LA [Concomitant]
     Indication: HYPERTONIC BLADDER
     Dosage: UNK
  12. GLUCOSAMINE CHONDROITIN            /01430901/ [Concomitant]
     Dosage: UNK

REACTIONS (9)
  - Pain [Not Recovered/Not Resolved]
  - Musculoskeletal discomfort [Not Recovered/Not Resolved]
  - Gait disturbance [Not Recovered/Not Resolved]
  - Activities of daily living impaired [Not Recovered/Not Resolved]
  - Joint stiffness [Not Recovered/Not Resolved]
  - Musculoskeletal pain [Not Recovered/Not Resolved]
  - Arthralgia [Not Recovered/Not Resolved]
  - Back pain [Not Recovered/Not Resolved]
  - Pain in extremity [Not Recovered/Not Resolved]
